FAERS Safety Report 23126850 (Version 1)
Quarter: 2023Q4

REPORT INFORMATION
  Report Type: Spontaneous
  Country: ZA (occurrence: ZA)
  Receive Date: 20231030
  Receipt Date: 20231030
  Transmission Date: 20240109
  Serious: Yes (Death)
  Sender: FDA-Public Use
  Company Number: ZA-002147023-NVSC2023ZA228654

PATIENT
  Age: 53 Year
  Sex: Female

DRUGS (2)
  1. FULVESTRANT [Suspect]
     Active Substance: FULVESTRANT
     Indication: Hormone receptor positive HER2 negative breast cancer
     Dosage: 500 MG, QMO
     Route: 030
     Dates: start: 20230724
  2. ALPELISIB [Suspect]
     Active Substance: ALPELISIB
     Indication: Hormone receptor positive HER2 negative breast cancer
     Dosage: 200 MG, QD
     Route: 048
     Dates: start: 20230724

REACTIONS (2)
  - Hormone receptor positive HER2 negative breast cancer [Fatal]
  - Malignant neoplasm progression [Fatal]

NARRATIVE: CASE EVENT DATE: 20231001
